FAERS Safety Report 5967752-0 (Version None)
Quarter: 2008Q4

REPORT INFORMATION
  Report Type: 
  Country: None (occurrence: None)
  Receive Date: 20081126
  Receipt Date: 20081120
  Transmission Date: 20090506
  Serious: Yes (Hospitalization)
  Sender: FDA-Public Use
  Company Number: US-JNJFOC-20081105442

PATIENT
  Sex: Female
  Weight: 123.38 kg

DRUGS (5)
  1. DURAGESIC-100 [Suspect]
     Indication: NEUROPATHY PERIPHERAL
     Route: 062
  2. REGULAR INSULIN [Concomitant]
     Indication: DIABETES MELLITUS
     Dosage: DOSE-15 UNITS
     Route: 058
  3. INSULATARD NPH HUMAN [Concomitant]
     Indication: DIABETES MELLITUS
     Dosage: DOSE- 55 UNITS
     Route: 058
  4. ENDRICIN [Concomitant]
     Indication: HYPERTENSION
     Route: 048
  5. CARDIZEM CD [Concomitant]
     Indication: HEART RATE INCREASED
     Route: 048

REACTIONS (2)
  - PNEUMONIA [None]
  - RENAL FAILURE [None]
